FAERS Safety Report 11467004 (Version 2)
Quarter: 2015Q4

REPORT INFORMATION
  Report Type: Spontaneous
  Country: US (occurrence: US)
  Receive Date: 20150908
  Receipt Date: 20151228
  Transmission Date: 20160304
  Serious: No
  Sender: FDA-Public Use
  Company Number: US-009507513-1509USA002033

PATIENT
  Sex: Female
  Weight: 50.34 kg

DRUGS (1)
  1. ASMANEX [Suspect]
     Active Substance: MOMETASONE FUROATE
     Indication: LUNG DISORDER
     Dosage: 220 MICROGRAM, ONE DAILY (ALSO REPORTED AS: ONE PUFF DAILY AT BEDTIME)
     Route: 055
     Dates: start: 2010, end: 20151102

REACTIONS (3)
  - Drug dose omission [Unknown]
  - Product quality issue [Unknown]
  - No adverse event [Unknown]
